FAERS Safety Report 4633830-1 (Version None)
Quarter: 2005Q2

REPORT INFORMATION
  Report Type: 
  Country: None (occurrence: None)
  Receive Date: 20050413
  Receipt Date: 20050408
  Transmission Date: 20051028
  Serious: Yes (Death)
  Sender: FDA-Public Use
  Company Number: JP-BOEHRINGER INGELHEIM PHARMACEUTICALS, INC.-2005-BP-05806NB

PATIENT
  Age: 76 Year
  Sex: Male

DRUGS (5)
  1. SPIRIVA [Suspect]
     Route: 055
     Dates: start: 20041217
  2. ZITHROMAC [Suspect]
     Indication: PNEUMONIA
     Route: 048
     Dates: start: 20050402, end: 20050404
  3. SEREVENT [Concomitant]
     Indication: ASTHMA
     Route: 055
  4. FLUTICASONE PROPIONATE [Concomitant]
     Indication: ASTHMA
     Route: 055
  5. MUCOSOLVAN [Concomitant]
     Indication: ASTHMA
     Route: 048

REACTIONS (1)
  - PNEUMONIA [None]
